FAERS Safety Report 22917046 (Version 11)
Quarter: 2024Q2

REPORT INFORMATION
  Report Type: Other
  Country: US (occurrence: US)
  Receive Date: 20230907
  Receipt Date: 20240607
  Transmission Date: 20240716
  Serious: Yes (Other)
  Sender: FDA-Public Use
  Company Number: US-TRAVERE-2023TVT00319

PATIENT
  Sex: Female
  Weight: 54.34 kg

DRUGS (18)
  1. FILSPARI [Suspect]
     Active Substance: SPARSENTAN
     Indication: IgA nephropathy
     Route: 048
     Dates: start: 202305
  2. FILSPARI [Suspect]
     Active Substance: SPARSENTAN
     Dates: start: 202306
  3. FILSPARI [Suspect]
     Active Substance: SPARSENTAN
     Route: 048
  4. FILSPARI [Suspect]
     Active Substance: SPARSENTAN
     Dosage: 400 MG
     Route: 048
     Dates: start: 202307
  5. FILSPARI [Suspect]
     Active Substance: SPARSENTAN
     Dates: start: 20231019
  6. SPIRONOLACTONE [Concomitant]
     Active Substance: SPIRONOLACTONE
  7. TYLENOL [Concomitant]
     Active Substance: ACETAMINOPHEN
  8. FISH OIL [Concomitant]
     Active Substance: FISH OIL
  9. BIOTIN [Concomitant]
     Active Substance: BIOTIN
  10. VITAMINS [Concomitant]
     Active Substance: VITAMINS
  11. MAGNESIUM [Concomitant]
     Active Substance: MAGNESIUM
  12. ROSUVASTATIN CALCIUM [Concomitant]
     Active Substance: ROSUVASTATIN CALCIUM
  13. ALLOPURINOL [Concomitant]
     Active Substance: ALLOPURINOL
  14. TELMISARTAN [Concomitant]
     Active Substance: TELMISARTAN
  15. TRIAMTERENE AND HYDROCHLOROTHIAZIDE [Concomitant]
     Active Substance: HYDROCHLOROTHIAZIDE\TRIAMTERENE
  16. COLLAGEN [Concomitant]
     Active Substance: COLLAGEN
  17. COLLAGEN [Concomitant]
     Active Substance: COLLAGEN
  18. LASIX [Concomitant]
     Active Substance: FUROSEMIDE

REACTIONS (9)
  - Renal impairment [Unknown]
  - Peripheral swelling [None]
  - Abdominal pain lower [Recovered/Resolved]
  - Wrong technique in product usage process [Unknown]
  - Neck pain [Unknown]
  - Cough [Unknown]
  - Arthralgia [Unknown]
  - Joint swelling [Unknown]
  - Alopecia [Unknown]
